FAERS Safety Report 5024307-2 (Version None)
Quarter: 2006Q2

REPORT INFORMATION
  Report Type: 
  Country: None (occurrence: None)
  Receive Date: 20060613
  Receipt Date: 20060608
  Transmission Date: 20061013
  Serious: Yes (Hospitalization)
  Sender: FDA-Public Use
  Company Number: PHEH2006US07515

PATIENT
  Sex: Female

DRUGS (2)
  1. CORZIDE [Suspect]
     Indication: HYPERTENSION
     Dates: start: 20010101, end: 20060501
  2. DIOVAN [Suspect]
     Indication: HYPERTENSION
     Dosage: 160 MG, QD
     Dates: start: 20010101, end: 20060501

REACTIONS (3)
  - BACK DISORDER [None]
  - RENAL IMPAIRMENT [None]
  - STAPHYLOCOCCAL INFECTION [None]
